FAERS Safety Report 6065630-2 (Version None)
Quarter: 2009Q1

REPORT INFORMATION
  Report Type: 
  Country: None (occurrence: None)
  Receive Date: 20090130
  Receipt Date: 20090120
  Transmission Date: 20090719
  Serious: Yes (Other)
  Sender: FDA-Public Use
  Company Number: 2008AP003509

PATIENT
  Age: 24 Year
  Sex: Female

DRUGS (18)
  1. TIMONIL          (CARBAMAZEPINE) [Suspect]
     Dosage: 450 MG; QD PO, 300 MG; PO; QD
     Route: 048
     Dates: start: 20080101, end: 20080814
  2. TIMONIL          (CARBAMAZEPINE) [Suspect]
     Dosage: 450 MG; QD PO, 300 MG; PO; QD
     Route: 048
     Dates: start: 20080101
  3. TIMONIL          (CARBAMAZEPINE) [Suspect]
     Dosage: 450 MG; QD PO, 300 MG; PO; QD
     Route: 048
     Dates: start: 20080815
  4. VENLAFAXINE HCL [Suspect]
     Dosage: 225 MG; QD PO, 37.5 MG; PO; QD, 75 MG; PO; QD, 150 MG; PO; QD
     Route: 048
     Dates: start: 20080828, end: 20080829
  5. VENLAFAXINE HCL [Suspect]
     Dosage: 225 MG; QD PO, 37.5 MG; PO; QD, 75 MG; PO; QD, 150 MG; PO; QD
     Route: 048
     Dates: start: 20080829, end: 20080830
  6. VENLAFAXINE HCL [Suspect]
     Dosage: 225 MG; QD PO, 37.5 MG; PO; QD, 75 MG; PO; QD, 150 MG; PO; QD
     Route: 048
     Dates: start: 20080831, end: 20080905
  7. VENLAFAXINE HCL [Suspect]
     Dosage: 225 MG; QD PO, 37.5 MG; PO; QD, 75 MG; PO; QD, 150 MG; PO; QD
     Route: 048
     Dates: start: 20080828
  8. VENLAFAXINE HCL [Suspect]
     Dosage: 225 MG; QD PO, 37.5 MG; PO; QD, 75 MG; PO; QD, 150 MG; PO; QD
     Route: 048
     Dates: start: 20080906
  9. MIRTAZAPINE [Suspect]
     Dosage: 45 MG; QD PO, 30 MG; PO; QD
     Route: 048
     Dates: start: 20080101, end: 20080818
  10. MIRTAZAPINE [Suspect]
     Dosage: 45 MG; QD PO, 30 MG; PO; QD
     Route: 048
     Dates: start: 20080101
  11. MIRTAZAPINE [Suspect]
     Dosage: 45 MG; QD PO, 30 MG; PO; QD
     Route: 048
     Dates: start: 20080819
  12. LITHIUM CARBONATE [Suspect]
     Dosage: 675 MG; QD PO, 225 MG; PO; QD, 450 MG; PO; QD
     Route: 048
     Dates: start: 20080818, end: 20080825
  13. LITHIUM CARBONATE [Suspect]
     Dosage: 675 MG; QD PO, 225 MG; PO; QD, 450 MG; PO; QD
     Route: 048
     Dates: start: 20080826, end: 20080830
  14. LITHIUM CARBONATE [Suspect]
     Dosage: 675 MG; QD PO, 225 MG; PO; QD, 450 MG; PO; QD
     Route: 048
     Dates: start: 20080831, end: 20080907
  15. LITHIUM CARBONATE [Suspect]
     Dosage: 675 MG; QD PO, 225 MG; PO; QD, 450 MG; PO; QD
     Route: 048
     Dates: start: 20080818
  16. LITHIUM CARBONATE [Suspect]
     Dosage: 675 MG; QD PO, 225 MG; PO; QD, 450 MG; PO; QD
     Route: 048
     Dates: start: 20080908
  17. TAXILAN (PERAZINE) [Suspect]
     Dosage: 50 MG; QD PO, 150 MG; PO; QD
     Route: 048
     Dates: start: 20080905
  18. DIAZEPAM [Concomitant]

REACTIONS (3)
  - MYOCLONUS [None]
  - PAIN [None]
  - TREMOR [None]
